FAERS Safety Report 6883674-5 (Version None)
Quarter: 2010Q3

REPORT INFORMATION
  Report Type: 
  Country: None (occurrence: None)
  Receive Date: 20100729
  Receipt Date: 20100714
  Transmission Date: 20110219
  Serious: Yes (Other)
  Sender: FDA-Public Use
  Company Number: A0866954A

PATIENT
  Age: 52 Year
  Sex: Male
  Weight: 100 kg

DRUGS (11)
  1. AVANDIA [Suspect]
     Indication: DIABETES MELLITUS
     Dosage: 4MG PER DAY
     Route: 048
     Dates: start: 20060501, end: 20070401
  2. TOPROL-XL [Concomitant]
  3. ZESTRIL [Concomitant]
  4. ZETIA [Concomitant]
  5. LIPITOR [Concomitant]
  6. ASPIRIN [Concomitant]
  7. METFORMIN HCL [Concomitant]
  8. NEURONTIN [Concomitant]
  9. GEODON [Concomitant]
  10. TRAZODONE [Concomitant]
  11. AMBIEN [Concomitant]

REACTIONS (2)
  - CEREBROVASCULAR ACCIDENT [None]
  - PAIN [None]
